FAERS Safety Report 12146383 (Version 1)
Quarter: 2016Q1

REPORT INFORMATION
  Report Type: Spontaneous
  Country: BR (occurrence: BR)
  Receive Date: 20160304
  Receipt Date: 20160304
  Transmission Date: 20160526
  Serious: Yes (Life-Threatening)
  Sender: FDA-Public Use
  Company Number: CHPA2016BR002631

PATIENT
  Sex: Female
  Weight: 47 kg

DRUGS (3)
  1. NICOTINE TRANSDERMAL SYSTEM [Suspect]
     Active Substance: NICOTINE
     Dosage: 7 MG, QD
     Route: 062
  2. NICOTINE TRANSDERMAL SYSTEM [Suspect]
     Active Substance: NICOTINE
     Indication: SMOKING CESSATION THERAPY
     Dosage: 21 MG, QD
     Route: 062
  3. NICOTINE TRANSDERMAL SYSTEM [Suspect]
     Active Substance: NICOTINE
     Dosage: 14 MG, QD
     Route: 062

REACTIONS (6)
  - Weight decreased [Unknown]
  - Nervousness [Unknown]
  - Feeling abnormal [Unknown]
  - Increased appetite [Unknown]
  - Asthenia [Unknown]
  - Weight increased [Unknown]
